FAERS Safety Report 5263911-3 (Version None)
Quarter: 2007Q1

REPORT INFORMATION
  Report Type: 
  Country: None (occurrence: None)
  Receive Date: 20070313
  Receipt Date: 20070307
  Transmission Date: 20070707
  Serious: Yes (Life-Threatening, Hospitalization, Other)
  Sender: FDA-Public Use
  Company Number: FR-ELI_LILLY_AND_COMPANY-FR200703001306

PATIENT
  Age: 72 Year
  Sex: Female

DRUGS (4)
  1. GEMZAR [Suspect]
     Indication: OVARIAN CANCER METASTATIC
     Dosage: UNK, UNKNOWN
     Route: 042
     Dates: start: 20070104
  2. HEPARIN [Concomitant]
     Route: 042
     Dates: start: 20070109
  3. PROTHIADEN [Concomitant]
     Route: 048
  4. ALPRAZOLAM [Concomitant]
     Route: 048

REACTIONS (4)
  - CONFUSIONAL STATE [None]
  - HEADACHE [None]
  - PETIT MAL EPILEPSY [None]
  - PULMONARY EMBOLISM [None]
